FAERS Safety Report 13556938 (Version 1)
Quarter: 2017Q2

REPORT INFORMATION
  Report Type: Spontaneous
  Country: US (occurrence: US)
  Receive Date: 20170518
  Receipt Date: 20170518
  Transmission Date: 20170830
  Serious: Yes (Hospitalization)
  Sender: FDA-Public Use
  Company Number: US-APOTEX-2017AP012184

PATIENT
  Age: 7 Year
  Sex: Female

DRUGS (4)
  1. VALPROIC ACID ORAL SOLUTION USP [Suspect]
     Active Substance: VALPROIC ACID
     Indication: SEIZURE
     Dosage: 250 MG, BID
     Route: 048
  2. CLOBAZAM [Suspect]
     Active Substance: CLOBAZAM
     Indication: SEIZURE
     Dosage: 15 MG, BID
     Route: 048
  3. CLONAZEPAM TABLETS USP [Suspect]
     Active Substance: CLONAZEPAM
     Indication: SEIZURE
     Dosage: 0.5 MG, QD
     Route: 048
  4. LAMOTRIGINE. [Suspect]
     Active Substance: LAMOTRIGINE
     Indication: SEIZURE
     Dosage: 100 MG, BID
     Route: 048

REACTIONS (7)
  - Drug level above therapeutic [Unknown]
  - Somnolence [Recovered/Resolved]
  - Drug interaction [Unknown]
  - Loss of personal independence in daily activities [Unknown]
  - Blood pressure decreased [Unknown]
  - Gait disturbance [Recovered/Resolved]
  - Seizure [Unknown]
